FAERS Safety Report 16226769 (Version 5)
Quarter: 2020Q1

REPORT INFORMATION
  Report Type: Spontaneous
  Country: CA (occurrence: CA)
  Receive Date: 20190423
  Receipt Date: 20200211
  Transmission Date: 20200409
  Serious: Yes (Hospitalization, Other)
  Sender: FDA-Public Use
  Company Number: CA-TEVA-2019-CA-1040212

PATIENT
  Age: 68 Year
  Sex: Female

DRUGS (32)
  1. CYCLOPHOSPHAMIDE. [Suspect]
     Active Substance: CYCLOPHOSPHAMIDE
     Indication: MANTLE CELL LYMPHOMA
     Route: 065
  2. RITUXIMAB. [Suspect]
     Active Substance: RITUXIMAB
     Indication: MANTLE CELL LYMPHOMA
     Route: 065
  3. FUROSEMIDE. [Suspect]
     Active Substance: FUROSEMIDE
     Indication: CARDIOMYOPATHY
  4. PERINDOPRIL [Suspect]
     Active Substance: PERINDOPRIL
     Indication: CARDIOMYOPATHY
  5. CARVEDILOL. [Suspect]
     Active Substance: CARVEDILOL
     Route: 065
  6. RITUXIMAB. [Concomitant]
     Active Substance: RITUXIMAB
     Indication: MANTLE CELL LYMPHOMA
     Route: 065
  7. VINCRISTINE [Concomitant]
     Active Substance: VINCRISTINE
     Indication: MANTLE CELL LYMPHOMA
     Route: 065
  8. DEXAMETHASONE. [Suspect]
     Active Substance: DEXAMETHASONE
     Indication: MANTLE CELL LYMPHOMA
     Route: 065
  9. CISPLATIN. [Concomitant]
     Active Substance: CISPLATIN
     Indication: MANTLE CELL LYMPHOMA
     Route: 065
  10. CISPLATIN. [Suspect]
     Active Substance: CISPLATIN
     Indication: MANTLE CELL LYMPHOMA
     Route: 065
  11. DOXORUBICIN HYDROCHLORIDE. [Suspect]
     Active Substance: DOXORUBICIN HYDROCHLORIDE
     Indication: MANTLE CELL LYMPHOMA
     Route: 065
  12. PERINDOPRIL [Suspect]
     Active Substance: PERINDOPRIL
     Indication: CARDIAC FAILURE CHRONIC
     Dosage: 4 MILLIGRAM DAILY;
     Route: 065
  13. CARVEDILOL. [Suspect]
     Active Substance: CARVEDILOL
     Route: 065
  14. CARVEDILOL. [Suspect]
     Active Substance: CARVEDILOL
     Route: 065
  15. PREDNISONE. [Concomitant]
     Active Substance: PREDNISONE
     Indication: MANTLE CELL LYMPHOMA
     Route: 065
  16. ANASTROZOLE. [Concomitant]
     Active Substance: ANASTROZOLE
     Indication: MALIGNANT PLEURAL EFFUSION
     Route: 065
  17. CLODRONATE DISODIUM [Concomitant]
     Active Substance: CLODRONATE DISODIUM
     Indication: MALIGNANT PLEURAL EFFUSION
     Route: 065
  18. CYTARABINE. [Suspect]
     Active Substance: CYTARABINE
     Indication: MANTLE CELL LYMPHOMA
     Route: 065
  19. VINCRISTINE [Suspect]
     Active Substance: VINCRISTINE
     Indication: MANTLE CELL LYMPHOMA
     Route: 065
  20. CYTARABINE. [Concomitant]
     Active Substance: CYTARABINE
     Indication: MANTLE CELL LYMPHOMA
     Route: 065
  21. MELPHALAN. [Suspect]
     Active Substance: MELPHALAN
     Indication: MANTLE CELL LYMPHOMA
     Route: 065
  22. FUROSEMIDE. [Suspect]
     Active Substance: FUROSEMIDE
     Indication: CARDIAC FAILURE CHRONIC
     Dosage: 40 MILLIGRAM DAILY;
     Route: 065
  23. NITRO-DUR [Suspect]
     Active Substance: NITROGLYCERIN
     Indication: CARDIAC FAILURE CHRONIC
     Dosage: 9.6 MILLIGRAM DAILY;
     Route: 065
  24. NITRO-DUR [Suspect]
     Active Substance: NITROGLYCERIN
     Indication: CARDIOMYOPATHY
  25. SPIRONOLACTONE. [Suspect]
     Active Substance: SPIRONOLACTONE
     Indication: CARDIAC FAILURE CHRONIC
     Dosage: 25 MILLIGRAM DAILY;
     Route: 065
  26. CYCLOPHOSPHAMIDE. [Concomitant]
     Active Substance: CYCLOPHOSPHAMIDE
     Indication: MANTLE CELL LYMPHOMA
     Route: 065
  27. MELPHALAN. [Concomitant]
     Active Substance: MELPHALAN
     Indication: MANTLE CELL LYMPHOMA
     Route: 065
  28. PREDNISONE. [Suspect]
     Active Substance: PREDNISONE
     Indication: MANTLE CELL LYMPHOMA
     Route: 065
  29. BISOPROLOL [Suspect]
     Active Substance: BISOPROLOL
     Indication: CARDIAC FAILURE CHRONIC
     Route: 065
  30. BISOPROLOL [Suspect]
     Active Substance: BISOPROLOL
     Indication: CARDIOMYOPATHY
     Dosage: 10 MILLIGRAM DAILY;
     Route: 065
  31. CANDESARTAN. [Suspect]
     Active Substance: CANDESARTAN
     Indication: CARDIAC FAILURE CHRONIC
     Dosage: 16 MILLIGRAM DAILY;
     Route: 065
  32. DEXAMETHASONE. [Concomitant]
     Active Substance: DEXAMETHASONE
     Indication: MANTLE CELL LYMPHOMA
     Route: 065

REACTIONS (17)
  - Product use in unapproved indication [Recovered/Resolved]
  - Dyspnoea [Recovered/Resolved]
  - Tricuspid valve incompetence [Recovering/Resolving]
  - N-terminal prohormone brain natriuretic peptide increased [Recovering/Resolving]
  - Pericardial effusion [Recovered/Resolved]
  - Hypovolaemia [Recovering/Resolving]
  - Cardiomyopathy [Recovered/Resolved]
  - Hypertension [Recovered/Resolved]
  - Disease progression [Recovering/Resolving]
  - Hypotension [Recovering/Resolving]
  - Drug ineffective [Unknown]
  - Off label use [Recovered/Resolved]
  - Atrial enlargement [Recovering/Resolving]
  - Toxicity to various agents [Recovered/Resolved]
  - Cardiac failure [Unknown]
  - Cough [Unknown]
  - Pulmonary arterial pressure increased [Recovering/Resolving]
